FAERS Safety Report 19007154 (Version 1)
Quarter: 2021Q1

REPORT INFORMATION
  Report Type: Spontaneous
  Country: US (occurrence: US)
  Receive Date: 20210314
  Receipt Date: 20210314
  Transmission Date: 20210420
  Serious: Yes (Hospitalization)
  Sender: FDA-Public Use
  Company Number: None

PATIENT
  Age: 67 Year
  Sex: Female
  Weight: 43.5 kg

DRUGS (4)
  1. REGULAR INSULIN [Concomitant]
     Active Substance: INSULIN NOS
     Dates: start: 20201220, end: 20201222
  2. PIQRAY [Suspect]
     Active Substance: ALPELISIB
     Indication: BREAST CANCER METASTATIC
     Route: 048
     Dates: start: 20201209
  3. METFORMIN [Concomitant]
     Active Substance: METFORMIN HYDROCHLORIDE
     Dates: start: 20201225
  4. 5% DEXTROSE/0.45% NORMAL SALINE [Concomitant]
     Dates: start: 20201221, end: 20201222

REACTIONS (1)
  - Diabetic ketoacidosis [None]

NARRATIVE: CASE EVENT DATE: 20201220
